FAERS Safety Report 8235225-0 (Version None)
Quarter: 2012Q1

REPORT INFORMATION
  Report Type: 
  Country: None (occurrence: None)
  Receive Date: 20120326
  Receipt Date: 20120315
  Transmission Date: 20120608
  Serious: Yes (Hospitalization, Other)
  Sender: FDA-Public Use
  Company Number: CA-JNJFOC-20120308474

PATIENT
  Sex: Female

DRUGS (2)
  1. REMICADE [Suspect]
     Indication: CROHN'S DISEASE
     Route: 042
     Dates: start: 20110401
  2. REMICADE [Suspect]
     Route: 042
     Dates: start: 20110704, end: 20110716

REACTIONS (7)
  - LABORATORY TEST ABNORMAL [None]
  - EATING DISORDER [None]
  - ILEOSTOMY [None]
  - ASTHENIA [None]
  - WEIGHT DECREASED [None]
  - FATIGUE [None]
  - DRUG INEFFECTIVE [None]
